FAERS Safety Report 14345545 (Version 4)
Quarter: 2018Q3

REPORT INFORMATION
  Report Type: Spontaneous
  Country: DE (occurrence: DE)
  Receive Date: 20180103
  Receipt Date: 20180925
  Transmission Date: 20181010
  Serious: Yes (Hospitalization, Other)
  Sender: FDA-Public Use
  Company Number: DE-AUROBINDO-AUR-APL-2017-48414

PATIENT
  Age: 30 Year
  Sex: Male

DRUGS (7)
  1. BLINCYTO [Suspect]
     Active Substance: BLINATUMOMAB
     Indication: BURKITT^S LYMPHOMA RECURRENT
     Dosage: 112 MCG/DL, UNK
     Route: 065
     Dates: start: 20170403
  2. BLINCYTO [Suspect]
     Active Substance: BLINATUMOMAB
     Dosage: 122 MILLIGRAM, ONCE A DAY
     Route: 065
  3. BLINCYTO [Suspect]
     Active Substance: BLINATUMOMAB
     Dosage: 28 MICROGRAM, ONCE A DAY
     Route: 065
  4. PALLADONE [Suspect]
     Active Substance: HYDROMORPHONE HYDROCHLORIDE
     Indication: PAIN
     Dosage: 1 MG, PRN
     Route: 065
     Dates: start: 20170402, end: 20170405
  5. PARACETAMOL [Suspect]
     Active Substance: ACETAMINOPHEN
     Indication: PYREXIA
  6. PARACETAMOL [Suspect]
     Active Substance: ACETAMINOPHEN
     Indication: PAIN
     Dosage: 1 G, AS NECESSARY
     Route: 042
     Dates: start: 20170402, end: 201704
  7. BLINCYTO [Suspect]
     Active Substance: BLINATUMOMAB
     Dosage: 591 MICROGRAM, UNK
     Route: 042
     Dates: start: 20170330

REACTIONS (9)
  - Blood lactate dehydrogenase decreased [Recovered/Resolved]
  - Neurotoxicity [Recovered/Resolved]
  - Abdominal pain lower [Unknown]
  - Skin reaction [Recovered/Resolved]
  - Ileus paralytic [Recovered/Resolved]
  - Pyrexia [Unknown]
  - Off label use [Unknown]
  - Cytokine release syndrome [Recovered/Resolved]
  - Burkitt^s lymphoma recurrent [Not Recovered/Not Resolved]

NARRATIVE: CASE EVENT DATE: 2017
